FAERS Safety Report 20873988 (Version 1)
Quarter: 2022Q2

REPORT INFORMATION
  Report Type: Spontaneous
  Country: US (occurrence: US)
  Receive Date: 20220525
  Receipt Date: 20220525
  Transmission Date: 20220721
  Serious: No
  Sender: FDA-Public Use
  Company Number: US-NOVARTISTESTPH-NVSC2022US120953

PATIENT
  Sex: Female

DRUGS (2)
  1. ESTRADIOL [Suspect]
     Active Substance: ESTRADIOL
     Indication: Product used for unknown indication
     Dosage: 0.0375 MG, 3 1/2 DAYS, 24H 8TTS
     Route: 062
  2. ESTRADIOL [Suspect]
     Active Substance: ESTRADIOL
     Dosage: 0.0375 MG, 3 1/2 DAYS
     Route: 062

REACTIONS (3)
  - Product adhesion issue [Unknown]
  - Product quality issue [Unknown]
  - Incorrect dose administered [Unknown]
